FAERS Safety Report 5336834-9 (Version None)
Quarter: 2007Q2

REPORT INFORMATION
  Report Type: 
  Country: None (occurrence: None)
  Receive Date: 20070524
  Receipt Date: 20070524
  Transmission Date: 20071010
  Serious: Yes (Hospitalization)
  Sender: FDA-Public Use
  Company Number: None

PATIENT
  Age: 86 Year
  Sex: Male
  Weight: 63.5036 kg

DRUGS (4)
  1. LISINOPRIL [Suspect]
     Indication: DIABETES MELLITUS
     Dosage: DAILY
  2. LISINOPRIL [Suspect]
     Indication: HYPERTENSION
     Dosage: DAILY
  3. SINEMET [Suspect]
     Indication: PARKINSON'S DISEASE
     Dosage: 25/100 2 TABS TID
  4. TERAZOSIN 2MG [Suspect]
     Dosage: 2MG DAILY

REACTIONS (2)
  - ORTHOSTATIC HYPOTENSION [None]
  - PARKINSON'S DISEASE [None]
